FAERS Safety Report 5483629-1 (Version None)
Quarter: 2007Q4

REPORT INFORMATION
  Report Type: 
  Country: None (occurrence: None)
  Receive Date: 20071010
  Receipt Date: 20071001
  Transmission Date: 20080405
  Serious: Yes (Other)
  Sender: FDA-Public Use
  Company Number: CHPA2007US10267

PATIENT
  Age: 76 Year
  Sex: Male
  Weight: 74.8 kg

DRUGS (3)
  1. BENEFIBER W/ WHEAT DEXTRIN (NCH)(WHEAT DEXTRIN) POWDER [Suspect]
     Indication: CONSTIPATION
     Dosage: 2 TSP, BID FOR 4 WEEKS, ORAL
     Route: 048
     Dates: start: 20070901
  2. COUMADIN [Concomitant]
  3. AVALIDE [Concomitant]

REACTIONS (1)
  - PROTHROMBIN TIME SHORTENED [None]
